FAERS Safety Report 8829981 (Version 1)
Quarter: 2012Q4

REPORT INFORMATION
  Report Type: Spontaneous
  Country: US (occurrence: None)
  Receive Date: 20121005
  Receipt Date: 20121005
  Transmission Date: 20130627
  Serious: No
  Sender: FDA-Public Use
  Company Number: None

PATIENT
  Age: 69 Year
  Sex: Male
  Weight: 98.1 kg

DRUGS (2)
  1. ISOVUE 300 [Suspect]
     Indication: CT SCAN
     Route: 042
     Dates: start: 20120810
  2. SILDENAFIL [Concomitant]

REACTIONS (1)
  - Urticaria [None]
